FAERS Safety Report 5484958-8 (Version None)
Quarter: 2007Q4

REPORT INFORMATION
  Report Type: 
  Country: None (occurrence: None)
  Receive Date: 20071011
  Receipt Date: 20070926
  Transmission Date: 20080405
  Serious: Yes (Hospitalization)
  Sender: FDA-Public Use
  Company Number: 2007-04387

PATIENT
  Age: 53 Year
  Sex: Female

DRUGS (2)
  1. TRELSTAR DEPOT [Suspect]
     Indication: OVARIAN DISORDER
     Dosage: 3.75 MG, Q MONTHLY, INTRAMUSCULAR
     Route: 030
     Dates: start: 20070410, end: 20070910
  2. EXEMESTANE [Suspect]
     Indication: OVARIAN DISORDER
     Dosage: 25 MG, ORAL
     Route: 048
     Dates: start: 20070410, end: 20070914

REACTIONS (5)
  - CARDIAC FAILURE CHRONIC [None]
  - CHEST PAIN [None]
  - DYSPNOEA [None]
  - HYPERTENSION [None]
  - LEFT VENTRICULAR DYSFUNCTION [None]
